FAERS Safety Report 9635920 (Version 4)
Quarter: 2014Q4

REPORT INFORMATION
  Report Type: Report from Study
  Country: US (occurrence: US)
  Receive Date: 20131021
  Receipt Date: 20141210
  Transmission Date: 20150529
  Serious: Yes (Hospitalization)
  Sender: FDA-Public Use
  Company Number: US-ROCHE-1290136

PATIENT
  Age: 21 Year
  Sex: Male
  Weight: 50.4 kg

DRUGS (3)
  1. BEVACIZUMAB [Suspect]
     Active Substance: BEVACIZUMAB
     Indication: RHABDOMYOSARCOMA
     Dosage: OVER 30-90 MINUTES ON DAY 1 OF 21 DAY CYCLE, LAST DOSE ON:01/JUL/2013
     Route: 042
     Dates: start: 20130201
  2. CYCLOPHOSPHAMIDE. [Suspect]
     Active Substance: CYCLOPHOSPHAMIDE
     Indication: RHABDOMYOSARCOMA
     Dosage: OVER 30-60 MINUTES ON DAY1 OF 21 DAY CYCLE , LAST DOSE ADMINISTERED ON:01/JUL/2013
     Route: 042
     Dates: start: 20130201
  3. VINORELBINE [Suspect]
     Active Substance: VINORELBINE\VINORELBINE TARTRATE
     Indication: RHABDOMYOSARCOMA
     Route: 042
     Dates: start: 20130201

REACTIONS (4)
  - Pain in jaw [Recovering/Resolving]
  - Mass [Recovered/Resolved]
  - Dental caries [Recovering/Resolving]
  - Stomatitis [Recovering/Resolving]

NARRATIVE: CASE EVENT DATE: 20130718
